FAERS Safety Report 4621059-2 (Version None)
Quarter: 2005Q1

REPORT INFORMATION
  Report Type: 
  Country: None (occurrence: None)
  Receive Date: 20050328
  Receipt Date: 20050316
  Transmission Date: 20050727
  Serious: Yes (Hospitalization)
  Sender: FDA-Public Use
  Company Number: 2005-03-0043

PATIENT
  Age: 70 Year
  Sex: Female
  Weight: 84 kg

DRUGS (6)
  1. INTRON A [Suspect]
     Indication: MALIGNANT MELANOMA
     Dosage: 39 MIU 5XWK SUBCUTANEOUS
     Route: 058
     Dates: start: 20050110, end: 20050204
  2. METFORMIN HCL [Concomitant]
  3. MELLITUS [Concomitant]
  4. RAMIPRIL [Concomitant]
  5. TENORMIN [Concomitant]
  6. CORDICANT [Concomitant]

REACTIONS (7)
  - ANGINA PECTORIS [None]
  - AORTIC ATHEROSCLEROSIS [None]
  - ATRIAL FIBRILLATION [None]
  - DYSPNOEA [None]
  - FATIGUE [None]
  - PYREXIA [None]
  - TACHYARRHYTHMIA [None]
